FAERS Safety Report 21781380 (Version 2)
Quarter: 2023Q1

REPORT INFORMATION
  Report Type: Report from Study
  Country: US (occurrence: US)
  Receive Date: 20221227
  Receipt Date: 20230206
  Transmission Date: 20230418
  Serious: Yes (Death)
  Sender: FDA-Public Use
  Company Number: US-JNJFOC-20221248191

PATIENT
  Age: 67 Year
  Sex: Male

DRUGS (4)
  1. SPRAVATO [Suspect]
     Active Substance: ESKETAMINE
     Indication: Depression
     Dosage: ^56 MG, 72 TOTAL DOSES^
     Dates: start: 20200107, end: 20221001
  2. CLONAZEPAM [Concomitant]
     Active Substance: CLONAZEPAM
     Indication: Anxiety
     Route: 048
     Dates: start: 20220502
  3. LICAB [Concomitant]
     Indication: Depression
     Route: 048
     Dates: start: 20220531
  4. TRAZODONE [Concomitant]
     Active Substance: TRAZODONE HYDROCHLORIDE
     Indication: Insomnia
     Route: 048
     Dates: start: 20220502

REACTIONS (1)
  - Death [Fatal]

NARRATIVE: CASE EVENT DATE: 20221018
